FAERS Safety Report 19272215 (Version 2)
Quarter: 2021Q3

REPORT INFORMATION
  Report Type: Report from Study
  Country: US (occurrence: US)
  Receive Date: 20210518
  Receipt Date: 20210728
  Transmission Date: 20211014
  Serious: No
  Sender: FDA-Public Use
  Company Number: US-SUNOVION-2021SUN001592

PATIENT
  Sex: Female

DRUGS (1)
  1. KYNMOBI [Suspect]
     Active Substance: APOMORPHINE HYDROCHLORIDE
     Dosage: 10 MG
     Route: 060
     Dates: start: 20210423

REACTIONS (6)
  - Nausea [Recovering/Resolving]
  - Somnolence [Recovering/Resolving]
  - Dysstasia [Recovered/Resolved]
  - Fatigue [Recovering/Resolving]
  - Yawning [Recovering/Resolving]
  - Feeling hot [Unknown]

NARRATIVE: CASE EVENT DATE: 20210423
